FAERS Safety Report 8914175 (Version 1)
Quarter: 2012Q4

REPORT INFORMATION
  Report Type: 
  Country: US (occurrence: US)
  Receive Date: 20121119
  Receipt Date: 20121119
  Transmission Date: 20130627
  Serious: No
  Sender: FDA-Public Use
  Company Number: US-009507513-1211USA006706

PATIENT
  Age: 26 Year
  Sex: Female

DRUGS (5)
  1. VICTRELIS [Suspect]
     Dosage: 800 mg, tid
     Route: 048
  2. RIBAVIRIN [Suspect]
  3. PEGASYS [Suspect]
     Dosage: 180mcg/m
  4. VITAMINS (UNSPECIFIED) [Concomitant]
  5. NEUPOGEN [Concomitant]

REACTIONS (1)
  - White blood cell count decreased [Unknown]
